FAERS Safety Report 5191564-1 (Version None)
Quarter: 2006Q4

REPORT INFORMATION
  Report Type: 
  Country: None (occurrence: None)
  Receive Date: 20061220
  Receipt Date: 20061220
  Transmission Date: 20070319
  Serious: Yes (Life-Threatening)
  Sender: FDA-Public Use
  Company Number: None

PATIENT
  Age: 44 Year
  Sex: Male
  Weight: 69 kg

DRUGS (1)
  1. AVASTIN [Suspect]
     Indication: COLON CANCER
     Dosage: 330MG EVERY 2 WEEKS IV BOLUS
     Route: 040
     Dates: start: 20060418, end: 20060418

REACTIONS (7)
  - ACUTE CORONARY SYNDROME [None]
  - CHEST PAIN [None]
  - INFUSION RELATED REACTION [None]
  - MYOCARDITIS [None]
  - PERICARDITIS [None]
  - TROPONIN INCREASED [None]
  - VENOUS THROMBOSIS [None]
